FAERS Safety Report 21448103 (Version 1)
Quarter: 2022Q4

REPORT INFORMATION
  Report Type: Report from Study
  Country: US (occurrence: US)
  Receive Date: 20221012
  Receipt Date: 20221012
  Transmission Date: 20230113
  Serious: No
  Sender: FDA-Public Use
  Company Number: US-ABBVIE-4143167

PATIENT
  Age: 64 Year
  Sex: Female

DRUGS (3)
  1. SKYRIZI [Suspect]
     Active Substance: RISANKIZUMAB-RZAA
     Indication: Psoriasis
     Dosage: 150MG/ML  WEEK 0
     Route: 058
     Dates: start: 20210801, end: 202108
  2. SKYRIZI [Suspect]
     Active Substance: RISANKIZUMAB-RZAA
     Dosage: 150MG/ML  WEEK 4
     Route: 058
     Dates: start: 202108, end: 202108
  3. SKYRIZI [Suspect]
     Active Substance: RISANKIZUMAB-RZAA
     Dosage: 150MG/ML
     Route: 058
     Dates: start: 2021

REACTIONS (2)
  - Pain of skin [Unknown]
  - Erythema [Unknown]

NARRATIVE: CASE EVENT DATE: 20220913
